FAERS Safety Report 10267842 (Version 1)
Quarter: 2014Q2

REPORT INFORMATION
  Report Type: Spontaneous
  Country: GB (occurrence: GB)
  Receive Date: 20140630
  Receipt Date: 20140630
  Transmission Date: 20141212
  Serious: Yes (Disabling, Other)
  Sender: FDA-Public Use
  Company Number: GB-TEVA-489854ISR

PATIENT
  Age: 69 Year
  Sex: Male
  Weight: 91.62 kg

DRUGS (11)
  1. ATORVASTATIN [Suspect]
     Route: 048
     Dates: start: 20050222, end: 20060924
  2. ATORVASTATIN [Suspect]
     Route: 048
     Dates: start: 20080515, end: 20121122
  3. SIMVASTATIN [Suspect]
     Route: 048
     Dates: start: 20060925, end: 20080514
  4. BISACODYL [Concomitant]
  5. CLOPIDOGREL [Concomitant]
  6. DICLOFENAC SODIUM [Concomitant]
  7. DIHYDROCODEINE [Concomitant]
  8. METFORMIN [Concomitant]
  9. OMEPRAZOLE [Concomitant]
  10. QUININE BISULPHATE [Concomitant]
  11. SITAGLIPTIN [Concomitant]

REACTIONS (4)
  - Myalgia [Not Recovered/Not Resolved]
  - Muscular weakness [Not Recovered/Not Resolved]
  - Balance disorder [Not Recovered/Not Resolved]
  - Myopathy [Not Recovered/Not Resolved]
